FAERS Safety Report 12860493 (Version 2)
Quarter: 2016Q4

REPORT INFORMATION
  Report Type: Spontaneous
  Country: TW (occurrence: TW)
  Receive Date: 20161019
  Receipt Date: 20161117
  Transmission Date: 20170207
  Serious: Yes (Hospitalization, Other)
  Sender: FDA-Public Use
  Company Number: TW-ACTELION-A-CH2016-143750

PATIENT
  Age: 62 Year
  Sex: Male

DRUGS (4)
  1. WARFARIN [Concomitant]
     Active Substance: WARFARIN
     Indication: PULMONARY ARTERIAL HYPERTENSION
     Dosage: 5 MG, QD
     Route: 048
     Dates: start: 201610
  2. VERAPAMIL [Concomitant]
     Active Substance: VERAPAMIL HYDROCHLORIDE
     Indication: PULMONARY ARTERIAL HYPERTENSION
     Dosage: 120 MG, BID
     Route: 048
     Dates: start: 201610
  3. TRACLEER [Suspect]
     Active Substance: BOSENTAN
     Indication: PULMONARY ARTERIAL HYPERTENSION
     Dosage: 125 MG, BID
     Route: 048
     Dates: start: 20160909
  4. COLCHICINE. [Concomitant]
     Active Substance: COLCHICINE
     Dosage: 0.5 MG, QD
     Route: 048
     Dates: start: 201603

REACTIONS (8)
  - Dyspnoea [Recovering/Resolving]
  - Prostate cancer stage IV [Not Recovered/Not Resolved]
  - Urinary tract infection [Recovering/Resolving]
  - Haematuria [Recovering/Resolving]
  - Muscle twitching [Recovering/Resolving]
  - Palpitations [Recovering/Resolving]
  - Sinus tachycardia [Recovering/Resolving]
  - Pyrexia [Recovering/Resolving]

NARRATIVE: CASE EVENT DATE: 20161010
